FAERS Safety Report 10273199 (Version 1)
Quarter: 2014Q2

REPORT INFORMATION
  Report Type: Spontaneous
  Country: US (occurrence: None)
  Receive Date: 20140630
  Receipt Date: 20140630
  Transmission Date: 20141212
  Serious: Yes (Hospitalization)
  Sender: FDA-Public Use
  Company Number: None

PATIENT
  Sex: 0

DRUGS (11)
  1. LISINOPRIL [Suspect]
     Indication: HYPERTENSION
     Route: 048
     Dates: start: 2005, end: 20140610
  2. CARVEDILOL (COREG) [Concomitant]
  3. GLIPIZIDE [Concomitant]
  4. SPIRONOLACTONE [Concomitant]
  5. ATORVASTATIN [Concomitant]
  6. FUROSEMIDE [Concomitant]
  7. METFORMIN [Concomitant]
  8. ASPIRIN [Concomitant]
  9. VIT D [Concomitant]
  10. AMLODIPINE [Concomitant]
  11. PACEMAKER/DIFIBULATOR [Concomitant]

REACTIONS (7)
  - Pruritus [None]
  - Urticaria [None]
  - Rash [None]
  - Swelling face [None]
  - Lip swelling [None]
  - Hypoaesthesia [None]
  - Speech disorder [None]
